FAERS Safety Report 4792990-2 (Version None)
Quarter: 2005Q4

REPORT INFORMATION
  Report Type: 
  Country: None (occurrence: None)
  Receive Date: 20051010
  Receipt Date: 20050919
  Transmission Date: 20060501
  Serious: Yes (Hospitalization)
  Sender: FDA-Public Use
  Company Number: ZA-MERCK-0509ZAF00018

PATIENT
  Age: 46 Year
  Sex: Male

DRUGS (3)
  1. INVANZ [Suspect]
     Indication: SEPSIS
     Route: 042
  2. ACETAMINOPHEN AND PROPOXYPHENE HYDROCHLORIDE [Concomitant]
     Route: 065
  3. [THERAPY UNSPECIFIED] [Concomitant]
     Indication: RESPIRATORY DEPRESSION
     Route: 065

REACTIONS (2)
  - OXYGEN SATURATION DECREASED [None]
  - RESPIRATORY DISTRESS [None]
